FAERS Safety Report 22220396 (Version 5)
Quarter: 2024Q2

REPORT INFORMATION
  Report Type: Report from Study
  Country: US (occurrence: US)
  Receive Date: 20230417
  Receipt Date: 20240517
  Transmission Date: 20240716
  Serious: Yes (Other)
  Sender: FDA-Public Use
  Company Number: US-BAUSCH-BL-2023-005965

PATIENT
  Age: 25 Year
  Sex: Female

DRUGS (1)
  1. XIFAXAN [Suspect]
     Active Substance: RIFAXIMIN
     Indication: Product used for unknown indication
     Route: 048
     Dates: start: 202302, end: 202304

REACTIONS (7)
  - Lyme disease [Unknown]
  - Concussion [Unknown]
  - Pupillary reflex impaired [Unknown]
  - Skin odour abnormal [Unknown]
  - Ill-defined disorder [Unknown]
  - Insurance issue [Unknown]
  - Therapy interrupted [Unknown]

NARRATIVE: CASE EVENT DATE: 20230401
